FAERS Safety Report 17578349 (Version 4)
Quarter: 2020Q3

REPORT INFORMATION
  Report Type: Report from Study
  Country: US (occurrence: US)
  Receive Date: 20200324
  Receipt Date: 20200819
  Transmission Date: 20201102
  Serious: Yes (Other)
  Sender: FDA-Public Use
  Company Number: NVSC2020US079695

PATIENT
  Age: 69 Year
  Sex: Female

DRUGS (3)
  1. MAYZENT [Suspect]
     Active Substance: SIPONIMOD
     Indication: RELAPSING MULTIPLE SCLEROSIS
     Dosage: 2 MG, QD
     Route: 048
     Dates: start: 20190722
  2. MAYZENT [Suspect]
     Active Substance: SIPONIMOD
     Dosage: 2 MG, QD
     Route: 048
  3. LASIX [Concomitant]
     Active Substance: FUROSEMIDE
     Indication: PRODUCT USED FOR UNKNOWN INDICATION
     Dosage: UNK
     Route: 065

REACTIONS (13)
  - Asthenia [Not Recovered/Not Resolved]
  - Costochondritis [Recovering/Resolving]
  - Peripheral swelling [Recovering/Resolving]
  - Humerus fracture [Unknown]
  - Muscle spasms [Not Recovered/Not Resolved]
  - Dyspnoea [Recovering/Resolving]
  - Muscle strain [Unknown]
  - Mobility decreased [Unknown]
  - Upper limb fracture [Unknown]
  - Paraesthesia [Not Recovered/Not Resolved]
  - Vitreous floaters [Not Recovered/Not Resolved]
  - Chest pain [Recovering/Resolving]
  - Cataract [Not Recovered/Not Resolved]

NARRATIVE: CASE EVENT DATE: 20200623
